FAERS Safety Report 7146353-5 (Version None)
Quarter: 2010Q4

REPORT INFORMATION
  Report Type: 
  Country: None (occurrence: None)
  Receive Date: 20101208
  Receipt Date: 20101207
  Transmission Date: 20110411
  Serious: Yes (Other)
  Sender: FDA-Public Use
  Company Number: FI-PFIZER INC-2010165560

PATIENT
  Age: 29 Year
  Sex: Male

DRUGS (1)
  1. REVATIO [Suspect]
     Dosage: 10 MG, 3X/DAY
     Dates: start: 20101121, end: 20101124

REACTIONS (1)
  - BLOOD PRESSURE FLUCTUATION [None]
